FAERS Safety Report 24601613 (Version 3)
Quarter: 2024Q4

REPORT INFORMATION
  Report Type: Spontaneous
  Country: FI (occurrence: FI)
  Receive Date: 20241111
  Receipt Date: 20241223
  Transmission Date: 20250115
  Serious: Yes (Other)
  Sender: TEVA
  Company Number: FI-TEVA-VS-3261804

PATIENT
  Age: 85 Year
  Sex: Male

DRUGS (2)
  1. MIRTAZAPINE [Suspect]
     Active Substance: MIRTAZAPINE
     Indication: Depression
     Dosage: RATIOPHARM
     Route: 065
  2. APIXABAN [Suspect]
     Active Substance: APIXABAN
     Indication: Product used for unknown indication
     Dosage: RATIOPHARM GMBH/ 30 PILLS OF APIXABAN OVER A 15-DAY PERIOD
     Route: 065

REACTIONS (5)
  - Prostatic disorder [Unknown]
  - Fatigue [Recovered/Resolved]
  - Nocturia [Not Recovered/Not Resolved]
  - Balance disorder [Unknown]
  - Therapeutic product effect incomplete [Unknown]
